FAERS Safety Report 6929667-0 (Version None)
Quarter: 2010Q3

REPORT INFORMATION
  Report Type: 
  Country: None (occurrence: None)
  Receive Date: 20100813
  Receipt Date: 20100803
  Transmission Date: 20110219
  Serious: Yes (Hospitalization)
  Sender: FDA-Public Use
  Company Number: 2010MA001577

PATIENT
  Age: 45 Year
  Sex: Female

DRUGS (8)
  1. FEVERALL [Suspect]
     Indication: PRODUCT USED FOR UNKNOWN INDICATION
     Dosage: 2 DF; QD; PO
     Route: 048
  2. FLUOXETINE [Suspect]
     Indication: PRODUCT USED FOR UNKNOWN INDICATION
     Dosage: 1 DF; TID; PO
     Route: 048
  3. TRAMADOL HYDROCHLORIDE [Suspect]
     Indication: PRODUCT USED FOR UNKNOWN INDICATION
     Dosage: 1 DF; BID; PO
     Route: 048
     Dates: start: 20090101
  4. THIOCOLCHICOSIDE (THIOCOLCHICOSIDE) [Suspect]
     Indication: FIBROMYALGIA
     Dosage: 1 DF; TID; PO
     Route: 048
  5. LEVOTHYROXINE SODIUM [Suspect]
     Indication: PRODUCT USED FOR UNKNOWN INDICATION
     Dosage: 137.5 MCG; QD; PO
     Route: 048
  6. PREGABALIN [Suspect]
     Indication: FIBROMYALGIA
     Dosage: 1 DF; BID; PO
     Route: 048
     Dates: start: 20090101
  7. CHONDROSULF (CHONDROITIN SULFATE SODIUM) [Suspect]
     Indication: FIBROMYALGIA
     Dosage: 1 DF; TID; PO
     Route: 048
     Dates: start: 20090101
  8. TRIVASTAL (PIRIBEDIL) [Suspect]
     Indication: FIBROMYALGIA
     Dosage: 1 DF; QD; PO
     Route: 048

REACTIONS (6)
  - CONSTIPATION [None]
  - COORDINATION ABNORMAL [None]
  - HYPERHIDROSIS [None]
  - MEMORY IMPAIRMENT [None]
  - NAUSEA [None]
  - VOMITING [None]
